FAERS Safety Report 6942856-4 (Version None)
Quarter: 2010Q3

REPORT INFORMATION
  Report Type: 
  Country: None (occurrence: None)
  Receive Date: 20100826
  Receipt Date: 20100813
  Transmission Date: 20110219
  Serious: Yes (Other)
  Sender: FDA-Public Use
  Company Number: US-ELI_LILLY_AND_COMPANY-US201008004699

PATIENT
  Sex: Male

DRUGS (6)
  1. ZYPREXA [Suspect]
     Dosage: 20 MG, DAILY (1/D)
  2. HYTRIN [Concomitant]
  3. PROSCAR [Concomitant]
  4. LEXAPRO [Concomitant]
  5. SEROQUEL [Concomitant]
  6. LORAZEPAM [Concomitant]

REACTIONS (7)
  - BLADDER MASS [None]
  - DYSURIA [None]
  - GLAUCOMA [None]
  - GYNAECOMASTIA [None]
  - HAEMATURIA [None]
  - LIBIDO DECREASED [None]
  - PROSTATOMEGALY [None]
